FAERS Safety Report 5660321-1 (Version None)
Quarter: 2008Q1

REPORT INFORMATION
  Report Type: 
  Country: None (occurrence: None)
  Receive Date: 20080311
  Receipt Date: 20070922
  Transmission Date: 20080703
  Serious: No
  Sender: FDA-Public Use
  Company Number: US-BAYER-200713072BCC

PATIENT
  Age: 6 Year
  Sex: Male
  Weight: 21 kg

DRUGS (6)
  1. ALEVE (CAPLET) [Suspect]
     Indication: ACCIDENTAL EXPOSURE
     Route: 048
     Dates: start: 20070922
  2. IBUPROFEN [Suspect]
     Indication: ACCIDENTAL EXPOSURE
     Route: 048
     Dates: start: 20070922
  3. REMERON [Concomitant]
  4. RISPERDAL [Concomitant]
  5. TENEX [Concomitant]
  6. ADDERALL 10 [Concomitant]

REACTIONS (2)
  - ACCIDENTAL EXPOSURE [None]
  - NO ADVERSE EVENT [None]
